FAERS Safety Report 4583328-4 (Version None)
Quarter: 2005Q1

REPORT INFORMATION
  Report Type: 
  Country: None (occurrence: None)
  Receive Date: 20050125
  Receipt Date: 20041021
  Transmission Date: 20050727
  Serious: No
  Sender: FDA-Public Use
  Company Number: USA040155911

PATIENT
  Age: 45 Year
  Sex: Female

DRUGS (11)
  1. FORTEO [Suspect]
     Indication: OSTEOPOROSIS
     Dates: start: 20031223
  2. VENTOLIN [Concomitant]
  3. PLAQUENIL [Concomitant]
  4. PREVACID [Concomitant]
  5. DYAZIDE [Concomitant]
  6. ADVAIR [Concomitant]
  7. PHRENILIN [Concomitant]
  8. TYLENOL W/ CODEINE NO. 3 [Concomitant]
  9. MAGNESIUM [Concomitant]
  10. CALCIUM GLUCONATE [Concomitant]
  11. VITAMINS [Concomitant]

REACTIONS (6)
  - ARTHRALGIA [None]
  - ARTHROPATHY [None]
  - CARTILAGE INJURY [None]
  - DIZZINESS [None]
  - JOINT STIFFNESS [None]
  - PALPITATIONS [None]
